FAERS Safety Report 19711755 (Version 1)
Quarter: 2021Q3

REPORT INFORMATION
  Report Type: Spontaneous
  Country: AU (occurrence: AU)
  Receive Date: 20210816
  Receipt Date: 20210816
  Transmission Date: 20211014
  Serious: Yes (Hospitalization, Other)
  Sender: FDA-Public Use
  Company Number: AU-ASSERTIO THERAPEUTICS, INC.-AU-2021AST000152

PATIENT

DRUGS (1)
  1. INDOMETHACIN SUPPOSITORIES [Suspect]
     Active Substance: INDOMETHACIN
     Indication: PAIN
     Dosage: 100 MG, UNK

REACTIONS (1)
  - Reversible cerebral vasoconstriction syndrome [Recovered/Resolved]
